FAERS Safety Report 13903840 (Version 3)
Quarter: 2017Q4

REPORT INFORMATION
  Report Type: Spontaneous
  Country: US (occurrence: US)
  Receive Date: 20170824
  Receipt Date: 20171006
  Transmission Date: 20180320
  Serious: Yes (Other)
  Sender: FDA-Public Use
  Company Number: US-JAZZ-2017-US-009433

PATIENT
  Age: 58 Year
  Sex: Male

DRUGS (2)
  1. PRIALT [Suspect]
     Active Substance: ZICONOTIDE ACETATE
     Indication: PAIN
     Dosage: 0.062 ?G, QH
     Route: 037
  2. PRIALT [Suspect]
     Active Substance: ZICONOTIDE ACETATE
     Indication: LUMBAR RADICULOPATHY
     Dosage: 0.1 ?G, QH
     Route: 037
     Dates: start: 2017

REACTIONS (7)
  - Blood glucose increased [Unknown]
  - Fall [Recovered/Resolved]
  - Alopecia [Unknown]
  - Malaise [Unknown]
  - Visual acuity reduced [Unknown]
  - Feeding disorder [Unknown]
  - Constipation [Unknown]

NARRATIVE: CASE EVENT DATE: 201707
